FAERS Safety Report 8315041-1 (Version None)
Quarter: 2012Q2

REPORT INFORMATION
  Report Type: 
  Country: None (occurrence: None)
  Receive Date: 20120426
  Receipt Date: 20120413
  Transmission Date: 20120825
  Serious: Yes (Other)
  Sender: FDA-Public Use
  Company Number: FR-ALEXION-A201200712

PATIENT
  Age: 7 Year
  Sex: Male

DRUGS (6)
  1. NIFEDIPINE [Concomitant]
     Indication: HYPERTENSION
  2. SOLIRIS [Suspect]
     Indication: PROPHYLAXIS
     Dosage: 900 MG, Q2W
     Route: 042
  3. LABETALOL HCL [Concomitant]
     Indication: HYPERTENSION
     Route: 065
  4. SOLIRIS [Suspect]
     Indication: HAEMOLYTIC URAEMIC SYNDROME
     Dosage: 600 MG, QW
     Route: 042
  5. MINOXIDIL [Concomitant]
     Indication: HYPERTENSION
     Route: 065
  6. ACE INHIBITOR NOS [Concomitant]
     Indication: HYPERTENSION

REACTIONS (3)
  - PSEUDOMONAL SEPSIS [None]
  - TRANSPLANT REJECTION [None]
  - RENAL ARTERY STENOSIS [None]
